FAERS Safety Report 7170877-8 (Version None)
Quarter: 2010Q4

REPORT INFORMATION
  Report Type: 
  Country: None (occurrence: None)
  Receive Date: 20101217
  Receipt Date: 20101208
  Transmission Date: 20110411
  Serious: Yes (Death, Life-Threatening)
  Sender: FDA-Public Use
  Company Number: A0899541A

PATIENT
  Sex: Female

DRUGS (2)
  1. ARZERRA [Suspect]
     Indication: MULTIPLE MYELOMA
     Route: 065
  2. UNKNOWN MEDICATION [Concomitant]

REACTIONS (2)
  - DEATH [None]
  - EJECTION FRACTION DECREASED [None]
